FAERS Safety Report 20311192 (Version 1)
Quarter: 2022Q1

REPORT INFORMATION
  Report Type: Spontaneous
  Country: US (occurrence: US)
  Receive Date: 20220107
  Receipt Date: 20220107
  Transmission Date: 20220423
  Serious: No
  Sender: FDA-Public Use
  Company Number: USA--2021-US-000669

PATIENT
  Age: 77 Year
  Sex: Female

DRUGS (1)
  1. BRIMONIDINE TARTRATE [Suspect]
     Active Substance: BRIMONIDINE TARTRATE
     Dosage: ONE DROP TO THE LEFT EYE THREE TIMES DAILY
     Dates: start: 2020

REACTIONS (2)
  - Alopecia [Unknown]
  - Condition aggravated [Unknown]
